FAERS Safety Report 4665509-4 (Version None)
Quarter: 2005Q2

REPORT INFORMATION
  Report Type: 
  Country: None (occurrence: None)
  Receive Date: 20050517
  Receipt Date: 20050301
  Transmission Date: 20051028
  Serious: Yes (Hospitalization)
  Sender: FDA-Public Use
  Company Number: 2005BI004540

PATIENT
  Age: 57 Year
  Sex: Female

DRUGS (13)
  1. AVONEX [Suspect]
     Indication: MULTIPLE SCLEROSIS
     Dosage: 30 UG; QW; IM
     Route: 030
     Dates: start: 19981001
  2. SKELAXIN [Concomitant]
  3. NAPROSYN [Concomitant]
  4. CELEXA [Concomitant]
  5. DIOVAN HCT [Concomitant]
  6. ZOCOR [Concomitant]
  7. PROVIGIL [Concomitant]
  8. DETROL LA [Concomitant]
  9. NEURONTIN [Concomitant]
  10. ACETYLSALICYLIC ACID [Concomitant]
  11. MULTI-VITAMIN [Concomitant]
  12. PREVACID [Concomitant]
  13. PAP [Concomitant]

REACTIONS (1)
  - HAEMOLYTIC ANAEMIA [None]
